FAERS Safety Report 4494269-5 (Version None)
Quarter: 2004Q4

REPORT INFORMATION
  Report Type: 
  Country: None (occurrence: None)
  Receive Date: 20041102
  Receipt Date: 20041014
  Transmission Date: 20050328
  Serious: Yes (Death, Other)
  Sender: FDA-Public Use
  Company Number: USA041081196

PATIENT
  Age: 67 Year
  Sex: Female

DRUGS (1)
  1. FORTEO [Suspect]
     Dates: start: 20040701

REACTIONS (4)
  - COMPLICATED FRACTURE [None]
  - FALL [None]
  - FAT EMBOLISM [None]
  - HIP FRACTURE [None]
